FAERS Safety Report 9187746 (Version 1)
Quarter: 2013Q1

REPORT INFORMATION
  Report Type: Spontaneous
  Country: GB (occurrence: GB)
  Receive Date: 20130325
  Receipt Date: 20130325
  Transmission Date: 20140127
  Serious: Yes (Other)
  Sender: FDA-Public Use
  Company Number: PHHY2013GB025636

PATIENT
  Age: 29 Year
  Sex: Female

DRUGS (7)
  1. OLANZAPINE [Suspect]
     Indication: AFFECTIVE DISORDER
     Dosage: 10 MG
     Route: 048
     Dates: start: 20120904
  2. LANSOPRAZOLE [Concomitant]
  3. NEFOPAM [Concomitant]
  4. MIRTAZAPINE [Concomitant]
  5. ZOPICLONE [Concomitant]
  6. PROMETHAZINE [Concomitant]
  7. THIAMINE [Concomitant]

REACTIONS (1)
  - Somnambulism [Recovered/Resolved]
